FAERS Safety Report 19625028 (Version 1)
Quarter: 2021Q3

REPORT INFORMATION
  Report Type: Report from Study
  Country: FR (occurrence: FR)
  Receive Date: 20210728
  Receipt Date: 20210728
  Transmission Date: 20211014
  Serious: Yes (Other)
  Sender: FDA-Public Use
  Company Number: FR-AMGEN-FRASP2021113778

PATIENT
  Sex: Female

DRUGS (2)
  1. AMG 510 [Suspect]
     Active Substance: AMG-510
     Indication: BRONCHIAL CARCINOMA
     Dosage: 960 MILLIGRAM, QD
     Route: 065
  2. AMG 510 [Suspect]
     Active Substance: AMG-510
     Indication: K-RAS GENE MUTATION

REACTIONS (2)
  - Cell death [Unknown]
  - Cholestasis [Unknown]
